FAERS Safety Report 8589982-4 (Version None)
Quarter: 2012Q3

REPORT INFORMATION
  Report Type: 
  Country: None (occurrence: None)
  Receive Date: 20120813
  Receipt Date: 20120803
  Transmission Date: 20120928
  Serious: Yes (Other)
  Sender: FDA-Public Use
  Company Number: FR-ELI_LILLY_AND_COMPANY-FR201208000920

PATIENT
  Sex: Male

DRUGS (11)
  1. DIGOXIN [Concomitant]
     Dosage: UNK, UNKNOWN
  2. FLECAINIDE ACETATE [Concomitant]
  3. JANUMET [Concomitant]
     Dosage: UNK, UNKNOWN
     Route: 065
  4. PAROXETINE HCL [Concomitant]
     Dosage: UNK, UNKNOWN
     Route: 065
  5. ALIMTA [Suspect]
     Indication: LUNG ADENOCARCINOMA
     Dosage: UNK, UNKNOWN
     Route: 065
     Dates: start: 20120308
  6. PREVISCAN [Concomitant]
     Dosage: UNK, UNKNOWN
     Route: 065
     Dates: end: 20111201
  7. CARBOPLATIN [Concomitant]
     Indication: LUNG ADENOCARCINOMA
     Dosage: UNK, UNKNOWN
     Route: 065
     Dates: start: 20120308
  8. ATORVASTATIN [Concomitant]
     Dosage: UNK, UNKNOWN
     Route: 065
  9. INNOHEP [Concomitant]
     Dosage: UNK
     Dates: start: 20111215
  10. TAMSULOSIN HCL [Concomitant]
     Dosage: UNK, UNKNOWN
     Route: 065
  11. PERMIXON [Concomitant]
     Dosage: UNK, UNKNOWN
     Route: 065

REACTIONS (2)
  - PURPURA [None]
  - NEOPLASM PROGRESSION [None]
